FAERS Safety Report 5249865-4 (Version None)
Quarter: 2007Q1

REPORT INFORMATION
  Report Type: 
  Country: None (occurrence: None)
  Receive Date: 20070228
  Receipt Date: 20070222
  Transmission Date: 20070707
  Serious: Yes (Hospitalization, Other)
  Sender: FDA-Public Use
  Company Number: US-AVENTIS-200711187US

PATIENT
  Sex: Male

DRUGS (16)
  1. LANTUS [Suspect]
     Dates: start: 20060801
  2. OPTICLIK (INSULIN INJECTION PEN) [Suspect]
     Dates: start: 20060801
  3. HUMALOG                            /00030501/ [Concomitant]
     Dosage: DOSE: WITH MEALS
  4. COUMADIN [Concomitant]
     Dosage: DOSE: UNK
     Dates: start: 20060801
  5. NORVASC [Concomitant]
     Dosage: DOSE: UNK
  6. TOPROL-XL [Concomitant]
     Dosage: DOSE: UNK
  7. ASPIRIN [Concomitant]
     Dosage: DOSE: UNK
  8. NEXIUM [Concomitant]
     Dosage: DOSE: UNK
  9. FOLIC ACID [Concomitant]
     Dosage: DOSE: UNK
  10. MONOPRIL [Concomitant]
     Dosage: DOSE: UNK
  11. FUROSEMIDE [Concomitant]
     Dosage: DOSE: UNK
  12. ZOCOR [Concomitant]
     Dosage: DOSE: UNK
  13. ALLEGRA [Concomitant]
  14. NIASPAN [Concomitant]
     Dosage: DOSE: UNK
  15. IRON [Concomitant]
     Dosage: DOSE: UNK
  16. NOVOLOG [Concomitant]
     Dosage: DOSE: UNK

REACTIONS (2)
  - CONFUSIONAL STATE [None]
  - TRANSIENT ISCHAEMIC ATTACK [None]
